FAERS Safety Report 6038759-2 (Version None)
Quarter: 2009Q1

REPORT INFORMATION
  Report Type: 
  Country: None (occurrence: None)
  Receive Date: 20090115
  Receipt Date: 20080211
  Transmission Date: 20090719
  Serious: No
  Sender: FDA-Public Use
  Company Number: US-ABBOTT-08P-163-0437424-00

PATIENT
  Sex: Male

DRUGS (5)
  1. ADVICOR [Suspect]
     Indication: BLOOD TRIGLYCERIDES INCREASED
     Dosage: 1000/20MG
     Route: 048
     Dates: start: 20020101, end: 20080210
  2. ADVICOR [Suspect]
     Indication: LOW DENSITY LIPOPROTEIN INCREASED
  3. LISINOPRIL [Concomitant]
     Indication: HYPERTENSION
     Route: 048
  4. HYDROCHLOROTHIAZIDE [Concomitant]
     Indication: HYPERTENSION
     Route: 048
  5. VARDENAFIL HYDROCHLORIDE [Concomitant]
     Indication: DRUG USE FOR UNKNOWN INDICATION

REACTIONS (2)
  - FLUSHING [None]
  - LOSS OF CONSCIOUSNESS [None]
